FAERS Safety Report 6772134-8 (Version None)
Quarter: 2010Q2

REPORT INFORMATION
  Report Type: 
  Country: None (occurrence: None)
  Receive Date: 20100616
  Receipt Date: 20100607
  Transmission Date: 20101027
  Serious: Yes (Hospitalization)
  Sender: FDA-Public Use
  Company Number: B0660693A

PATIENT
  Sex: Female

DRUGS (2)
  1. AUGMENTIN '125' [Suspect]
     Indication: TONSILLITIS
     Dosage: 2G PER DAY
     Route: 048
     Dates: start: 20100515, end: 20100521
  2. CLARITHROMYCIN [Suspect]
     Indication: TONSILLITIS
     Dosage: 500MG PER DAY
     Route: 048
     Dates: start: 20100505, end: 20100514

REACTIONS (2)
  - PRURITUS [None]
  - RASH PAPULAR [None]
